FAERS Safety Report 18417960 (Version 2)
Quarter: 2020Q4

REPORT INFORMATION
  Report Type: Spontaneous
  Country: US (occurrence: US)
  Receive Date: 20201023
  Receipt Date: 20201204
  Transmission Date: 20210114
  Serious: Yes (Other)
  Sender: FDA-Public Use
  Company Number: US-ROCHE-2700422

PATIENT
  Sex: Female

DRUGS (2)
  1. TUKYSA [Concomitant]
     Active Substance: TUCATINIB
     Indication: BREAST CANCER FEMALE
  2. XELODA [Suspect]
     Active Substance: CAPECITABINE
     Indication: PRODUCT USED FOR UNKNOWN INDICATION
     Route: 065
     Dates: start: 20101002

REACTIONS (2)
  - Brain oedema [Unknown]
  - Dizziness [Unknown]
